FAERS Safety Report 22924950 (Version 5)
Quarter: 2024Q3

REPORT INFORMATION
  Report Type: Spontaneous
  Country: US (occurrence: US)
  Receive Date: 20230908
  Receipt Date: 20240919
  Transmission Date: 20241017
  Serious: Yes (Other)
  Sender: PFIZER
  Company Number: US-PFIZER INC-US-GBT-018994

PATIENT
  Age: 41 Year
  Sex: Male
  Weight: 70.31 kg

DRUGS (2)
  1. OXBRYTA [Suspect]
     Active Substance: VOXELOTOR
     Indication: Sickle cell anaemia
     Dosage: 500MG 3 TABLETS ONCE DAILY, ORALLY
     Route: 048
     Dates: start: 202201
  2. OXBRYTA [Suspect]
     Active Substance: VOXELOTOR
     Dosage: 500 MG 3 TABLETS DAILY, ORALLY
     Route: 048

REACTIONS (2)
  - Sickle cell anaemia with crisis [Unknown]
  - Somnolence [Recovered/Resolved]

NARRATIVE: CASE EVENT DATE: 20221222
